FAERS Safety Report 8368312-7 (Version None)
Quarter: 2012Q2

REPORT INFORMATION
  Report Type: 
  Country: None (occurrence: None)
  Receive Date: 20120517
  Receipt Date: 20120411
  Transmission Date: 20120825
  Serious: Yes (Other)
  Sender: FDA-Public Use
  Company Number: PHHY2008GB03817

PATIENT
  Sex: Male

DRUGS (4)
  1. EXJADE [Suspect]
     Indication: THALASSAEMIA BETA
     Dosage: 750 MG, UNK
     Dates: start: 20060601
  2. PENICILLIN V [Concomitant]
     Dosage: 125MG, BID
  3. FOLIC ACID [Concomitant]
     Indication: THALASSAEMIA BETA
     Dosage: 5 MG, QD
  4. VENTOLIN [Concomitant]

REACTIONS (5)
  - ABDOMINAL PAIN UPPER [None]
  - URINE ANALYSIS ABNORMAL [None]
  - RECTAL DISCHARGE [None]
  - SERUM FERRITIN DECREASED [None]
  - GASTROINTESTINAL INFECTION [None]
